FAERS Safety Report 18923318 (Version 2)
Quarter: 2022Q1

REPORT INFORMATION
  Report Type: Spontaneous
  Country: US (occurrence: US)
  Receive Date: 20210222
  Receipt Date: 20220210
  Transmission Date: 20220424
  Serious: No
  Sender: FDA-Public Use
  Company Number: US-PFIZER INC-2021159457

PATIENT
  Age: 77 Year
  Sex: Female
  Weight: 59.87 kg

DRUGS (1)
  1. HEPARIN SODIUM [Suspect]
     Active Substance: HEPARIN SODIUM
     Dosage: UNK

REACTIONS (2)
  - Rash [Recovered/Resolved]
  - Platelet count decreased [Unknown]
